FAERS Safety Report 8002523-5 (Version None)
Quarter: 2011Q4

REPORT INFORMATION
  Report Type: 
  Country: None (occurrence: None)
  Receive Date: 20111222
  Receipt Date: 20111219
  Transmission Date: 20120403
  Serious: Yes (Other)
  Sender: FDA-Public Use
  Company Number: SE-PFIZER INC-2011175698

PATIENT
  Age: 71 Year
  Sex: Female

DRUGS (7)
  1. ZOLOFT [Suspect]
     Dosage: 25 MG, DAILY
     Dates: start: 20110501
  2. ZOLOFT [Suspect]
     Dosage: 25 MG, DAILY
     Dates: start: 20110701, end: 20110901
  3. XANOR - SLOW RELEASE [Concomitant]
     Dosage: UNK
  4. ALPRAZOLAM [Concomitant]
     Dosage: UNK
  5. OMEPRAZOLE [Concomitant]
     Dosage: UNK
  6. OXAZEPAM [Concomitant]
     Dosage: UNK
  7. ZOLOFT [Suspect]
     Dosage: 50 MG, DAILY
     Dates: end: 20110701

REACTIONS (13)
  - URETHRAL OBSTRUCTION [None]
  - CHEST PAIN [None]
  - WITHDRAWAL SYNDROME [None]
  - DEPRESSED MOOD [None]
  - FEELING COLD [None]
  - MYALGIA [None]
  - NAUSEA [None]
  - SUICIDAL IDEATION [None]
  - PAIN [None]
  - DYSPEPSIA [None]
  - FATIGUE [None]
  - ABDOMINAL DISTENSION [None]
  - DRUG INTOLERANCE [None]
